FAERS Safety Report 4515134-0 (Version None)
Quarter: 2004Q4

REPORT INFORMATION
  Report Type: 
  Country: None (occurrence: None)
  Receive Date: 20041130
  Receipt Date: 20041130
  Transmission Date: 20050328
  Serious: No
  Sender: FDA-Public Use
  Company Number: None

PATIENT
  Age: 40 Year
  Sex: Female
  Weight: 48.6 kg

DRUGS (1)
  1. HEPARIN [Suspect]
     Indication: DEEP VENOUS THROMBOSIS PROPHYLAXIS
     Dosage: 5000 UNITS Q8H SUBCUTANEO
     Route: 058
     Dates: start: 20041115, end: 20041129

REACTIONS (1)
  - PLATELET COUNT DECREASED [None]
